FAERS Safety Report 10396064 (Version 1)
Quarter: 2014Q1

REPORT INFORMATION
  Report Type: Spontaneous
  Country: US (occurrence: None)
  Receive Date: 20130118
  Receipt Date: 20130118
  Transmission Date: 20141002
  Serious: Yes (Hospitalization)
  Sender: FDA-Public Use
  Company Number: A-US2011-57442

PATIENT
  Age: 47 Year
  Sex: Female

DRUGS (2)
  1. TRACLEER (BOSENTAN) TABLET [Suspect]
     Indication: PULMONARY ARTERIAL HYPERTENSION
     Route: 048
     Dates: start: 20100423
  2. COUMADIN (WARFARIN SODIUM) [Concomitant]

REACTIONS (3)
  - Flushing [None]
  - Productive cough [None]
  - Dyspnoea exertional [None]
